FAERS Safety Report 10581680 (Version 1)
Quarter: 2014Q4

REPORT INFORMATION
  Report Type: Other
  Country: GB (occurrence: GB)
  Receive Date: 20141113
  Receipt Date: 20141113
  Transmission Date: 20150529
  Serious: Yes (Disabling, Other)
  Sender: FDA-Public Use
  Company Number: GB-MYLANLABS-2014M1009227

PATIENT

DRUGS (2)
  1. DONEPEZIL [Suspect]
     Active Substance: DONEPEZIL
     Indication: DEMENTIA ALZHEIMER^S TYPE
     Dosage: IN THE MORNING
  2. DONEPEZIL [Suspect]
     Active Substance: DONEPEZIL
     Dosage: IN THE MORNING

REACTIONS (3)
  - Panic attack [Recovering/Resolving]
  - Insomnia [Recovered/Resolved]
  - Mobility decreased [Recovering/Resolving]
